FAERS Safety Report 18257712 (Version 1)
Quarter: 2020Q3

REPORT INFORMATION
  Report Type: Spontaneous
  Country: US (occurrence: US)
  Receive Date: 20200911
  Receipt Date: 20200911
  Transmission Date: 20201103
  Serious: Yes (Disabling, Other)
  Sender: FDA-Public Use
  Company Number: None

PATIENT
  Age: 42 Year
  Sex: Female
  Weight: 63 kg

DRUGS (10)
  1. CIPROFLOXACIN. [Suspect]
     Active Substance: CIPROFLOXACIN
     Indication: URINARY TRACT INFECTION
     Dosage: ?          QUANTITY:14 TABLET(S);?
     Route: 048
     Dates: start: 20200425, end: 20200426
  2. MULTIVITAMIN [Concomitant]
     Active Substance: VITAMINS
  3. MILK THISTLE [Concomitant]
     Active Substance: DIETARY SUPPLEMENT\HERBALS\MILK THISTLE
  4. LAXATIVES [Concomitant]
     Active Substance: UNSPECIFIED INGREDIENT
  5. MAGNESIUM L?THREONATE [Concomitant]
  6. MITO Q [Concomitant]
  7. STOOL SOFTENER (DOCUSATE) [Concomitant]
     Active Substance: DOCUSATE
  8. MAGNESIUM GLYCINATE [Concomitant]
     Active Substance: MAGNESIUM GLYCINATE
  9. XYREM [Concomitant]
     Active Substance: SODIUM OXYBATE
  10. N?A?C [Concomitant]

REACTIONS (15)
  - Cerebral disorder [None]
  - Gait inability [None]
  - Anxiety [None]
  - Arthropathy [None]
  - Insomnia [None]
  - Dyspepsia [None]
  - Arthralgia [None]
  - Impaired driving ability [None]
  - Toxicity to various agents [None]
  - Food intolerance [None]
  - Decreased appetite [None]
  - Panic reaction [None]
  - Blepharospasm [None]
  - Muscular weakness [None]
  - Neuropathy peripheral [None]

NARRATIVE: CASE EVENT DATE: 20200425
